FAERS Safety Report 18665809 (Version 1)
Quarter: 2020Q4

REPORT INFORMATION
  Report Type: Spontaneous
  Country: DE (occurrence: DE)
  Receive Date: 20201226
  Receipt Date: 20201226
  Transmission Date: 20210114
  Serious: Yes (Other)
  Sender: FDA-Public Use
  Company Number: DE-TEVA-2020-DE-1861271

PATIENT
  Age: 59 Year
  Sex: Female
  Weight: 53 kg

DRUGS (4)
  1. OMEPRAZOL MYLAN 20 MG MAGENSAFTRESISTENTE HARTKAPSELN [Concomitant]
     Dosage: 20 MG
     Dates: start: 20201209
  2. RAMILICH 2,5 MG TABLETTEN [Concomitant]
     Dosage: 2.5 MG
     Dates: start: 202012
  3. LORAZEPAM DURA 1 MG TABLETTEN [Concomitant]
     Active Substance: LORAZEPAM
     Dosage: 1 MG
     Dates: start: 20201209
  4. IBUPROFEN 600 [Suspect]
     Active Substance: IBUPROFEN
     Dosage: 1800 MILLIGRAM DAILY; 3 TABLETS DAILY
     Route: 065
     Dates: start: 202010

REACTIONS (6)
  - Dyspnoea [Not Recovered/Not Resolved]
  - Hypertension [Not Recovered/Not Resolved]
  - Pain [Unknown]
  - Dyspnoea at rest [Not Recovered/Not Resolved]
  - Palpitations [Not Recovered/Not Resolved]
  - Blood pressure fluctuation [Unknown]

NARRATIVE: CASE EVENT DATE: 202011
